FAERS Safety Report 4378833-X (Version None)
Quarter: 2004Q2

REPORT INFORMATION
  Report Type: 
  Country: None (occurrence: None)
  Receive Date: 20040610
  Receipt Date: 20040601
  Transmission Date: 20050107
  Serious: Yes (Hospitalization)
  Sender: FDA-Public Use
  Company Number: GB-JNJFOC-20040505349

PATIENT
  Age: 59 Year
  Sex: Female

DRUGS (13)
  1. REMICADE (INFLIXIMAB, RECOMBINANT) LYOPHILIZED POWDER [Suspect]
     Indication: RHEUMATOID ARTHRITIS
     Dosage: 170 MG, INTRAVENOUS
     Route: 042
     Dates: start: 20030430
  2. ARTHROTEC [Concomitant]
  3. METHOTREXATE [Concomitant]
  4. FOLIC ACID [Concomitant]
  5. PREDNISOLONE [Concomitant]
  6. LOSEC (OMEPRAZOLE) [Concomitant]
  7. CO-PROXAMOL (APOREX) [Concomitant]
  8. HRT (ANDROGENS AND FEMALE SEX HORMONES IN COMB) [Concomitant]
  9. SERETIDE (SERETIDE) [Concomitant]
  10. VENTOLIN [Concomitant]
  11. SOLAIRE (ALL OTHER THERAPEUTIC PRODUCTS) [Concomitant]
  12. AMLODIPINE [Concomitant]
  13. LANSOPRAZOLE [Concomitant]

REACTIONS (4)
  - C-REACTIVE PROTEIN INCREASED [None]
  - HAEMODIALYSIS [None]
  - MULTI-ORGAN FAILURE [None]
  - PNEUMOCOCCAL SEPSIS [None]
